FAERS Safety Report 7963200-X (Version None)
Quarter: 2011Q4

REPORT INFORMATION
  Report Type: 
  Country: None (occurrence: None)
  Receive Date: 20111208
  Receipt Date: 20111202
  Transmission Date: 20120403
  Serious: Yes (Hospitalization)
  Sender: FDA-Public Use
  Company Number: US-BIOGENIDEC-2010BI034897

PATIENT
  Age: 55 Year
  Sex: Female

DRUGS (2)
  1. AVONEX [Suspect]
     Indication: MULTIPLE SCLEROSIS
     Route: 030
     Dates: start: 19980201, end: 20100923
  2. AVONEX [Suspect]
     Route: 030

REACTIONS (4)
  - HIATUS HERNIA [None]
  - BLOOD COUNT ABNORMAL [None]
  - GASTRIC MUCOSAL LESION [None]
  - ARTHRALGIA [None]
